FAERS Safety Report 12279740 (Version 3)
Quarter: 2016Q2

REPORT INFORMATION
  Report Type: Report from Study
  Country: US (occurrence: US)
  Receive Date: 20160418
  Receipt Date: 20160518
  Transmission Date: 20160815
  Serious: No
  Sender: FDA-Public Use
  Company Number: PHEH2016US009384

PATIENT
  Sex: Female

DRUGS (2)
  1. EXTAVIA [Suspect]
     Active Substance: INTERFERON BETA-1B
     Dosage: 0.125 MG (0.5 ML), QOD FOR WEEKS 3-4
     Route: 058
  2. EXTAVIA [Suspect]
     Active Substance: INTERFERON BETA-1B
     Indication: MULTIPLE SCLEROSIS
     Dosage: 0.0625 MG (0.25 ML), QOD FOR WEEK 1 TO 2
     Route: 058
     Dates: start: 20160405

REACTIONS (11)
  - Sinus disorder [Not Recovered/Not Resolved]
  - Feeling abnormal [Recovered/Resolved]
  - Muscular weakness [Recovered/Resolved]
  - Decreased appetite [Recovered/Resolved]
  - Concomitant disease aggravated [Not Recovered/Not Resolved]
  - Balance disorder [Not Recovered/Not Resolved]
  - Ocular hyperaemia [Not Recovered/Not Resolved]
  - Insomnia [Recovered/Resolved]
  - Headache [Recovered/Resolved]
  - Dizziness [Not Recovered/Not Resolved]
  - Gait disturbance [Recovered/Resolved]
